FAERS Safety Report 7114178-2 (Version None)
Quarter: 2010Q4

REPORT INFORMATION
  Report Type: 
  Country: None (occurrence: None)
  Receive Date: 20101119
  Receipt Date: 20101108
  Transmission Date: 20110411
  Serious: Yes (Other)
  Sender: FDA-Public Use
  Company Number: DE-SANOFI-AVENTIS-2010SA067546

PATIENT
  Age: 79 Year
  Sex: Female
  Weight: 47.5 kg

DRUGS (9)
  1. MULTAQ [Suspect]
     Indication: ATRIAL FIBRILLATION
     Route: 048
     Dates: start: 20100614, end: 20100614
  2. MULTAQ [Suspect]
     Indication: PROPHYLAXIS
     Route: 048
     Dates: start: 20100614, end: 20100614
  3. METOPROLOL SUCCINATE [Concomitant]
     Dosage: DOSAGE: 3/4 TABLET DAILY
     Route: 048
  4. KARVEZIDE [Concomitant]
     Route: 048
  5. LERCANIDIPINE [Concomitant]
     Dosage: DOSAGE: 1/2-1/2-0
     Route: 048
  6. ACETYLSALICYLIC ACID SRT [Concomitant]
     Route: 048
  7. SIMVASTATIN [Concomitant]
     Dosage: DOSAGE: 0-0-1/2
     Route: 048
  8. VITAMIN D [Concomitant]
     Route: 065
  9. SAB SIMPLEX [Concomitant]
     Route: 065

REACTIONS (4)
  - BRADYCARDIA [None]
  - CARDIOVASCULAR DISORDER [None]
  - CIRCULATORY COLLAPSE [None]
  - SINUS ARREST [None]
